FAERS Safety Report 7684732-8 (Version None)
Quarter: 2011Q3

REPORT INFORMATION
  Report Type: 
  Country: None (occurrence: None)
  Receive Date: 20110810
  Receipt Date: 20110804
  Transmission Date: 20111222
  Serious: Yes (Hospitalization, Other)
  Sender: FDA-Public Use
  Company Number: 201110920

PATIENT
  Sex: Female

DRUGS (1)
  1. LIORESAL [Suspect]
     Indication: MUSCLE SPASTICITY
     Dosage: 130 MCG, DAILY, INTRATHECAL
     Route: 037

REACTIONS (6)
  - MUSCLE SPASTICITY [None]
  - PARADOXICAL DRUG REACTION [None]
  - MUSCLE RIGIDITY [None]
  - HYPERTONIA [None]
  - PAIN IN EXTREMITY [None]
  - MUSCLE SPASMS [None]
